FAERS Safety Report 4456250-1 (Version None)
Quarter: 2004Q3

REPORT INFORMATION
  Report Type: 
  Country: None (occurrence: None)
  Receive Date: 20040902
  Receipt Date: 20040623
  Transmission Date: 20050211
  Serious: No
  Sender: FDA-Public Use
  Company Number: 200326810BWH

PATIENT
  Age: 72 Year
  Sex: Male
  Weight: 70.3075 kg

DRUGS (8)
  1. LEVITRA [Suspect]
     Indication: ERECTILE DYSFUNCTION
     Dosage: 10 MG, ONCE, ORAL
     Route: 048
     Dates: start: 20031021
  2. SYNTHROID [Concomitant]
  3. ASPIRIN [Concomitant]
  4. ZOCOR [Concomitant]
  5. CARDIZEM CD [Concomitant]
  6. TOPROL-XL [Concomitant]
  7. ZOLOFT [Concomitant]
  8. SERZONE [Concomitant]

REACTIONS (3)
  - CARDIOVASCULAR DISORDER [None]
  - HEADACHE [None]
  - MUSCLE TIGHTNESS [None]
